FAERS Safety Report 12089965 (Version 2)
Quarter: 2016Q1

REPORT INFORMATION
  Report Type: Spontaneous
  Country: US (occurrence: US)
  Receive Date: 20160218
  Receipt Date: 20160328
  Transmission Date: 20160526
  Serious: Yes (Hospitalization, Other)
  Sender: FDA-Public Use
  Company Number: US-CELGENEUS-USA-2016023224

PATIENT
  Age: 83 Year
  Sex: Female

DRUGS (1)
  1. REVLIMID [Suspect]
     Active Substance: LENALIDOMIDE
     Indication: PLASMA CELL MYELOMA
     Dosage: 15 MILLIGRAM
     Route: 048
     Dates: start: 20160203, end: 20160206

REACTIONS (4)
  - Diarrhoea [Unknown]
  - Sepsis [Not Recovered/Not Resolved]
  - Dehydration [Unknown]
  - Fall [Unknown]

NARRATIVE: CASE EVENT DATE: 2016
